FAERS Safety Report 5616155-7 (Version None)
Quarter: 2008Q1

REPORT INFORMATION
  Report Type: 
  Country: None (occurrence: None)
  Receive Date: 20080206
  Receipt Date: 20080128
  Transmission Date: 20080703
  Serious: Yes (Other)
  Sender: FDA-Public Use
  Company Number: IT-PFIZER INC-2008009566

PATIENT
  Sex: Female

DRUGS (1)
  1. RELPAX [Suspect]
     Indication: HEADACHE
     Dosage: DAILY DOSE:40MG
     Route: 048
     Dates: start: 20080117, end: 20080117

REACTIONS (5)
  - CHOKING SENSATION [None]
  - DYSGEUSIA [None]
  - EPISTAXIS [None]
  - FEELING COLD [None]
  - SYNCOPE [None]
